FAERS Safety Report 24720774 (Version 1)
Quarter: 2024Q4

REPORT INFORMATION
  Report Type: Spontaneous
  Country: US (occurrence: US)
  Receive Date: 20241211
  Receipt Date: 20241211
  Transmission Date: 20250115
  Serious: No
  Sender: DR REDDYS
  Company Number: US-DRL-USA-SPO/USA/24/0018107

PATIENT
  Sex: Female

DRUGS (1)
  1. CLONIDINE TRANSDERMAL SYSTEM USP, 0.2 MG/DAY [Suspect]
     Active Substance: CLONIDINE
     Indication: Blood pressure measurement
     Route: 062

REACTIONS (5)
  - Rash [Unknown]
  - Hypertension [Unknown]
  - Pain in extremity [Unknown]
  - Skin burning sensation [Unknown]
  - Drug delivery system issue [Unknown]
